FAERS Safety Report 11783967 (Version 1)
Quarter: 2015Q4

REPORT INFORMATION
  Report Type: Spontaneous
  Country: US (occurrence: US)
  Receive Date: 20151128
  Receipt Date: 20151128
  Transmission Date: 20160305
  Serious: Yes (Death, Hospitalization)
  Sender: FDA-Public Use
  Company Number: US-SUN PHARMACEUTICAL INDUSTRIES LTD-2015US-106643

PATIENT
  Age: 48 Year
  Sex: Male

DRUGS (1)
  1. METFORMIN [Suspect]
     Active Substance: METFORMIN HYDROCHLORIDE
     Indication: PRODUCT USED FOR UNKNOWN INDICATION
     Dosage: 90 DF
     Route: 048

REACTIONS (5)
  - Multi-organ failure [Fatal]
  - Lactic acidosis [Not Recovered/Not Resolved]
  - Acute respiratory distress syndrome [Fatal]
  - Hypotension [Not Recovered/Not Resolved]
  - Intentional overdose [Unknown]
